FAERS Safety Report 20914570 (Version 1)
Quarter: 2022Q2

REPORT INFORMATION
  Report Type: Spontaneous
  Country: US (occurrence: US)
  Receive Date: 20220604
  Receipt Date: 20220604
  Transmission Date: 20220720
  Serious: No
  Sender: FDA-Public Use
  Company Number: US-SA-SAC20220523001335

PATIENT
  Age: 89 Year
  Sex: Female

DRUGS (4)
  1. DUPIXENT [Suspect]
     Active Substance: DUPILUMAB
     Indication: Dermatitis atopic
     Dosage: 300 MG, QOW
     Route: 058
     Dates: start: 20220113
  2. COLLAGEN PLUS [ASCORBIC ACID;COLLAGEN;HYALURONIC ACID] [Concomitant]
     Route: 048
  3. CORTIZONE 10 [Concomitant]
     Active Substance: HYDROCORTISONE
  4. FIBER LAXATIVE [Concomitant]
     Active Substance: CALCIUM POLYCARBOPHIL
     Route: 048

REACTIONS (4)
  - Constipation [Unknown]
  - Pruritus [Unknown]
  - Asthenia [Unknown]
  - Mobility decreased [Unknown]
